FAERS Safety Report 9449215 (Version 1)
Quarter: 2013Q3

REPORT INFORMATION
  Report Type: Spontaneous
  Country: DE (occurrence: DE)
  Receive Date: 20130808
  Receipt Date: 20130808
  Transmission Date: 20140515
  Serious: Yes (Hospitalization, Other)
  Sender: FDA-Public Use
  Company Number: DE-ACTAVIS-2013-14032

PATIENT
  Age: 1 Day
  Sex: Male
  Weight: 3.3 kg

DRUGS (2)
  1. CLONAZEPAM (UNKNOWN) [Suspect]
     Indication: ILL-DEFINED DISORDER
     Dosage: 2 MG, DAILY
     Route: 064
     Dates: start: 20071109, end: 20080810
  2. PAROXETINE HYDROCHLORIDE (UNKNOWN) [Suspect]
     Indication: ILL-DEFINED DISORDER
     Dosage: 60 MG, DAILY
     Route: 064
     Dates: start: 20071109, end: 20080810

REACTIONS (3)
  - Myoclonus [Recovered/Resolved]
  - Hypertonia neonatal [Recovered/Resolved]
  - Foetal exposure during pregnancy [Recovered/Resolved]
